FAERS Safety Report 7919013-8 (Version None)
Quarter: 2011Q4

REPORT INFORMATION
  Report Type: 
  Country: None (occurrence: None)
  Receive Date: 20111116
  Receipt Date: 20111111
  Transmission Date: 20120403
  Serious: Yes (Hospitalization)
  Sender: FDA-Public Use
  Company Number: US-GILEAD-2011-0044654

PATIENT
  Sex: Female

DRUGS (1)
  1. RANEXA [Suspect]
     Indication: ANGINA PECTORIS
     Dosage: 1 DF, UNK
     Dates: start: 20110922, end: 20110926

REACTIONS (3)
  - ASTHENIA [None]
  - SYNCOPE [None]
  - BLOOD PRESSURE DECREASED [None]
